FAERS Safety Report 5885024-X (Version None)
Quarter: 2008Q3

REPORT INFORMATION
  Report Type: 
  Country: None (occurrence: None)
  Receive Date: 20080912
  Receipt Date: 20080826
  Transmission Date: 20090109
  Serious: Yes (Hospitalization)
  Sender: FDA-Public Use
  Company Number: PIR# 0809003

PATIENT
  Age: 84 Year
  Sex: Male

DRUGS (1)
  1. CEFTRIAXONE [Suspect]

REACTIONS (10)
  - ATRIAL FIBRILLATION [None]
  - HAEMODYNAMIC INSTABILITY [None]
  - HYPOTENSION [None]
  - HYPOXIA [None]
  - INCORRECT DOSE ADMINISTERED [None]
  - KLEBSIELLA INFECTION [None]
  - SPUTUM CULTURE POSITIVE [None]
  - STAPHYLOCOCCAL INFECTION [None]
  - TACHYCARDIA [None]
  - TOXIC EPIDERMAL NECROLYSIS [None]
